FAERS Safety Report 4341024-2 (Version None)
Quarter: 2004Q2

REPORT INFORMATION
  Report Type: 
  Country: None (occurrence: None)
  Receive Date: 20040413
  Receipt Date: 20031125
  Transmission Date: 20050107
  Serious: No
  Sender: FDA-Public Use
  Company Number: DE-JNJFOC-20031004900

PATIENT
  Sex: Male

DRUGS (1)
  1. RISPERDAL [Suspect]
     Dosage: 1 MG, IN 1 DAY

REACTIONS (1)
  - NO ADVERSE EFFECT [None]
